FAERS Safety Report 4584058-5 (Version None)
Quarter: 2005Q1

REPORT INFORMATION
  Report Type: 
  Country: None (occurrence: None)
  Receive Date: 20050216
  Receipt Date: 20050112
  Transmission Date: 20050727
  Serious: Yes (Hospitalization)
  Sender: FDA-Public Use
  Company Number: NO-MERCK-0501NOR00020

PATIENT
  Age: 73 Year
  Sex: Female

DRUGS (10)
  1. VIOXX [Suspect]
     Indication: RHEUMATOID ARTHRITIS
     Route: 048
     Dates: start: 20010521, end: 20040801
  2. LANSOPRAZOLE [Concomitant]
     Route: 065
  3. AMLODIPINE BESYLATE [Concomitant]
     Indication: HYPERTENSION
     Route: 065
     Dates: end: 20040801
  4. FORMOTEROL FUMARATE [Concomitant]
     Route: 065
  5. PREDNISOLONE [Concomitant]
     Indication: ECZEMA
     Route: 065
  6. ASPIRIN AND MAGNESIUM OXIDE [Concomitant]
     Route: 065
  7. CLOPIDOGREL BISULFATE [Concomitant]
     Route: 065
     Dates: start: 20031201
  8. ATORVASTATIN CALCIUM [Concomitant]
     Route: 065
  9. METOPROLOL TARTRATE [Concomitant]
     Route: 065
  10. PROCHLORPERAZINE MALEATE [Concomitant]
     Indication: NAUSEA
     Route: 065

REACTIONS (5)
  - ACUTE MYOCARDIAL INFARCTION [None]
  - CORONARY ARTERY OCCLUSION [None]
  - CORONARY ARTERY STENOSIS [None]
  - DYSPEPSIA [None]
  - MYOCARDIAL INFARCTION [None]
